FAERS Safety Report 7934419-9 (Version None)
Quarter: 2011Q4

REPORT INFORMATION
  Report Type: 
  Country: None (occurrence: None)
  Receive Date: 20111122
  Receipt Date: 20111116
  Transmission Date: 20120403
  Serious: Yes (Hospitalization)
  Sender: FDA-Public Use
  Company Number: US-GLAXOSMITHKLINE-A0953408A

PATIENT
  Age: 76 Year
  Sex: Female

DRUGS (5)
  1. SPIRIVA [Concomitant]
  2. ZETIA [Concomitant]
  3. COREG [Suspect]
     Indication: CARDIAC FAILURE CONGESTIVE
     Dosage: 12.5MG TWICE PER DAY
     Route: 048
     Dates: start: 20000101, end: 20090101
  4. DIABETES MEDICATION [Concomitant]
  5. MULTI-VITAMIN [Concomitant]

REACTIONS (2)
  - ANGINA PECTORIS [None]
  - MYOCARDIAL INFARCTION [None]
